FAERS Safety Report 10223635 (Version 1)
Quarter: 2014Q2

REPORT INFORMATION
  Report Type: Report from Study
  Country: US (occurrence: US)
  Receive Date: 20140609
  Receipt Date: 20140609
  Transmission Date: 20141212
  Serious: Yes (Other)
  Sender: FDA-Public Use
  Company Number: US-ROCHE-1412969

PATIENT
  Sex: Male
  Weight: 39 kg

DRUGS (7)
  1. NUTROPIN AQ [Suspect]
     Indication: HYPOPITUITARISM
     Route: 058
  2. HYDROCORTISONE [Concomitant]
     Route: 048
     Dates: start: 20140515
  3. HYDROCORTISONE SODIUM SUCCINATE [Concomitant]
     Dosage: PRN
     Route: 030
     Dates: start: 20140515
  4. TESTOSTERONE CYPIONATE [Concomitant]
     Route: 065
     Dates: start: 20140515
  5. LEVOTHYROXINE SODIUM [Concomitant]
     Route: 048
     Dates: start: 20140515
  6. MIRALAX [Concomitant]
  7. GLUCAGON [Concomitant]
     Indication: HYPOGLYCAEMIA
     Route: 030

REACTIONS (7)
  - Convulsion [Unknown]
  - Abnormal weight gain [Unknown]
  - Growth retardation [Unknown]
  - Blood thyroid stimulating hormone decreased [Unknown]
  - Treatment noncompliance [Unknown]
  - Nightmare [Unknown]
  - Delayed puberty [Unknown]
